FAERS Safety Report 21483354 (Version 4)
Quarter: 2024Q1

REPORT INFORMATION
  Report Type: Other
  Country: CA (occurrence: CA)
  Receive Date: 20221020
  Receipt Date: 20240119
  Transmission Date: 20240409
  Serious: Yes (Other)
  Sender: FDA-Public Use
  Company Number: CA-GLENMARK PHARMACEUTICALS-2022GMK075830

PATIENT

DRUGS (14)
  1. TOPIRAMATE [Suspect]
     Active Substance: TOPIRAMATE
     Indication: Migraine
     Dosage: UNK
     Route: 065
  2. AIMOVIG [Suspect]
     Active Substance: ERENUMAB-AOOE
     Indication: Migraine
     Dosage: UNK
     Route: 065
  3. CANDESARTAN CILEXETIL [Suspect]
     Active Substance: CANDESARTAN CILEXETIL
     Indication: Migraine
     Dosage: UNK
     Route: 065
  4. PROPRANOLOL [Suspect]
     Active Substance: PROPRANOLOL HYDROCHLORIDE
     Indication: Migraine
     Dosage: UNK
     Route: 065
  5. VERAPAMIL [Suspect]
     Active Substance: VERAPAMIL HYDROCHLORIDE
     Indication: Migraine
     Dosage: UNK
     Route: 065
  6. PROPRANOLOL HYDROCHLORIDE [Suspect]
     Active Substance: PROPRANOLOL HYDROCHLORIDE
     Indication: Migraine
     Dosage: UNK
     Route: 065
  7. PROPRANOLOL HYDROCHLORIDE [Suspect]
     Active Substance: PROPRANOLOL HYDROCHLORIDE
     Dosage: 40 MILLIGRAM,  1 EVERY 1 DAY
     Route: 065
  8. PROPRANOLOL HYDROCHLORIDE [Suspect]
     Active Substance: PROPRANOLOL HYDROCHLORIDE
     Indication: Migraine
     Dosage: 40 MILLIGRAM, 1 EVERY 1 DAYS
     Route: 065
  9. ERENUMAB-AOOE [Suspect]
     Active Substance: ERENUMAB-AOOE
     Indication: Migraine
     Dosage: UNK
     Route: 065
  10. VERAPAMIL HCL [Suspect]
     Active Substance: VERAPAMIL HYDROCHLORIDE
     Indication: Migraine
     Dosage: UNK
     Route: 065
  11. AMITRIPTYLINE [Concomitant]
     Active Substance: AMITRIPTYLINE
     Indication: Product used for unknown indication
     Dosage: UNK
     Route: 065
  12. AMITRIPTYLINE [Concomitant]
     Active Substance: AMITRIPTYLINE
     Indication: Product used for unknown indication
     Dosage: UNK
     Route: 065
  13. AMITRIPTYLINE [Concomitant]
     Active Substance: AMITRIPTYLINE
     Dosage: UNK
     Route: 065
  14. AMITRIPTYLINE [Concomitant]
     Active Substance: AMITRIPTYLINE
     Dosage: UNK
     Route: 065

REACTIONS (7)
  - Drug intolerance [Unknown]
  - Product use in unapproved indication [Unknown]
  - Off label use [Unknown]
  - Bradycardia [Unknown]
  - Memory impairment [Unknown]
  - Drug ineffective for unapproved indication [Unknown]
  - Drug ineffective [Unknown]
